FAERS Safety Report 25285600 (Version 1)
Quarter: 2025Q2

REPORT INFORMATION
  Report Type: Spontaneous
  Country: AU (occurrence: AU)
  Receive Date: 20250509
  Receipt Date: 20250509
  Transmission Date: 20250716
  Serious: Yes (Other)
  Sender: RANBAXY
  Company Number: AU-SUN PHARMACEUTICAL INDUSTRIES LTD-2025R1-506471

PATIENT
  Age: 41 Year
  Sex: Male

DRUGS (13)
  1. CEPHALEXIN [Suspect]
     Active Substance: CEPHALEXIN
     Indication: Peripheral ischaemia
     Route: 065
  2. MEROPENEM [Suspect]
     Active Substance: MEROPENEM
     Indication: Enterobacter infection
     Route: 065
  3. MEROPENEM [Suspect]
     Active Substance: MEROPENEM
     Indication: Staphylococcal infection
  4. CLINDAMYCIN [Suspect]
     Active Substance: CLINDAMYCIN
     Indication: Antibiotic therapy
     Route: 065
  5. FLUCLOXACILLIN [Suspect]
     Active Substance: FLUCLOXACILLIN
     Indication: Antibiotic therapy
     Route: 065
  6. FLUCLOXACILLIN [Suspect]
     Active Substance: FLUCLOXACILLIN
     Indication: Peripheral ischaemia
  7. GENTAMICIN [Suspect]
     Active Substance: GENTAMICIN
     Indication: Peripheral ischaemia
     Dosage: 160 MILLIGRAM, DAILY
     Route: 042
  8. METRONIDAZOLE [Suspect]
     Active Substance: METRONIDAZOLE
     Indication: Enterobacter infection
     Route: 065
  9. METRONIDAZOLE [Suspect]
     Active Substance: METRONIDAZOLE
     Indication: Wound infection staphylococcal
  10. TEICOPLANIN [Suspect]
     Active Substance: TEICOPLANIN
     Indication: Enterobacter infection
     Route: 042
  11. TEICOPLANIN [Suspect]
     Active Substance: TEICOPLANIN
     Indication: Wound infection staphylococcal
  12. VANCOMYCIN [Suspect]
     Active Substance: VANCOMYCIN
     Indication: Enterobacter sepsis
     Route: 065
  13. VANCOMYCIN [Suspect]
     Active Substance: VANCOMYCIN
     Indication: Wound infection staphylococcal

REACTIONS (2)
  - Drug resistance [Recovering/Resolving]
  - Treatment failure [Recovering/Resolving]
